FAERS Safety Report 7145272 (Version 4)
Quarter: 2013Q1

REPORT INFORMATION
  Report Type: Report from Study
  Country: FR (occurrence: FR)
  Receive Date: 20091009
  Receipt Date: 20130315
  Transmission Date: 20140127
  Serious: Yes (Hospitalization)
  Sender: FDA-Public Use
  Company Number: FR-ABBOTT-09P-056-0599950-00

PATIENT
  Age: 23 Year
  Sex: Female
  Weight: 70 kg

DRUGS (3)
  1. HUMIRA [Suspect]
     Indication: CROHN^S DISEASE
     Route: 058
     Dates: start: 20090324, end: 20090519
  2. HUMIRA [Suspect]
     Dates: start: 20090818
  3. IMUREL [Concomitant]
     Indication: CROHN^S DISEASE
     Dates: start: 200303

REACTIONS (5)
  - Renal failure acute [Recovered/Resolved]
  - Dehydration [None]
  - Diarrhoea [None]
  - Hypophagia [None]
  - Kidney transplant rejection [None]
